FAERS Safety Report 10562230 (Version 4)
Quarter: 2024Q4

REPORT INFORMATION
  Report Type: Spontaneous
  Country: GR (occurrence: GR)
  Receive Date: 20141104
  Receipt Date: 20241114
  Transmission Date: 20250115
  Serious: Yes (Death, Other)
  Sender: MERCK
  Company Number: None

PATIENT
  Age: 34 Year
  Sex: Female
  Weight: 53 kg

DRUGS (19)
  1. EMEND [Suspect]
     Active Substance: APREPITANT
     Indication: Prophylaxis of nausea and vomiting
     Dosage: 125-80-80 THE 3 FIRST DAYS OF EACH CYCLE
     Route: 048
     Dates: start: 20140702
  2. PREDNISOLONE [Suspect]
     Active Substance: PREDNISOLONE
     Indication: Product used for unknown indication
     Dosage: 20MG 3 TIMES A DAY FOR DAYS1-14
     Route: 048
  3. DOXORUBICIN HYDROCHLORIDE [Suspect]
     Active Substance: DOXORUBICIN HYDROCHLORIDE
     Indication: Hodgkin^s disease
     Dosage: 55 MG DAY 1 INTRAVENOUSLY
     Route: 042
     Dates: start: 20140702
  4. CYCLOPHOSPHAMIDE [Suspect]
     Active Substance: CYCLOPHOSPHAMIDE
     Indication: Hodgkin^s disease
     Dosage: 1950MG DAY1 INTRAVENOUSLY
     Route: 042
     Dates: start: 20140702
  5. ETOPOSIDE [Suspect]
     Active Substance: ETOPOSIDE
     Indication: Hodgkin^s disease
     Dosage: 300MG DAYS1-3 INTRAVENOUSLY
     Route: 042
     Dates: start: 20140702
  6. ONDANSETRON HYDROCHLORIDE [Suspect]
     Active Substance: ONDANSETRON HYDROCHLORIDE
     Indication: Prophylaxis of nausea and vomiting
     Dosage: UNK
  7. ONDANSETRON HYDROCHLORIDE [Suspect]
     Active Substance: ONDANSETRON HYDROCHLORIDE
     Indication: Product used for unknown indication
  8. FILGRASTIM [Suspect]
     Active Substance: FILGRASTIM
     Indication: White blood cell count decreased
     Dosage: ADMINISTERED ON 10/7 AND 12/7/2014, ACCORDING TO THE MOTHER
     Dates: start: 20140710, end: 20140712
  9. ZOFRAN [Suspect]
     Active Substance: ONDANSETRON HYDROCHLORIDE
     Indication: Prophylaxis of nausea and vomiting
     Dosage: WHEN HAVING NAUSEA AND UP TO 2 TABLETS A DAY
     Route: 048
  10. PROCARBAZINE HYDROCHLORIDE [Suspect]
     Active Substance: PROCARBAZINE HYDROCHLORIDE
     Indication: Hodgkin^s disease
     Dosage: 50MG 3 TIMES A DAY, FOR DAYS 1 TO 7
     Route: 048
     Dates: start: 20140702
  11. MESNA [Suspect]
     Active Substance: MESNA
     Indication: Product used for unknown indication
     Dosage: 800MG BEFORE ENDOXAN AND 800MG 4HOURS AFTER
     Dates: start: 20140702
  12. ARANESP [Suspect]
     Active Substance: DARBEPOETIN ALFA
     Indication: Product used for unknown indication
     Dosage: 150 UNK, QWK
  13. ONDANSETRON [Suspect]
     Active Substance: ONDANSETRON
     Indication: Prophylaxis of nausea and vomiting
     Dosage: UNK
  14. PREDNISOLONE [Suspect]
     Active Substance: PREDNISOLONE
     Indication: Hodgkin^s disease
     Dosage: 20MG 3 TIMES A DAY FOR DAYS1-14
     Route: 048
  15. ONDANSETRON [Suspect]
     Active Substance: ONDANSETRON
     Indication: Prophylaxis of nausea and vomiting
     Dosage: 8MG, WHEN HAVING NAUSEA AND UP TO 2 TABLETS PER DAY
  16. ZANTAC [Concomitant]
     Active Substance: RANITIDINE HYDROCHLORIDE
     Dosage: FOR THE DAYS CORTISONE IS ADMINISTERED
     Dates: start: 20140702
  17. ZANTAC [Concomitant]
     Active Substance: RANITIDINE HYDROCHLORIDE
     Dosage: 150 MG, FOR THE DAYS CORTISONE IS ADMINISTERED
     Dates: start: 20140702
  18. ALLOPURINOL [Concomitant]
     Active Substance: ALLOPURINOL
     Dosage: CONTINUOUSLY
     Dates: start: 20140702
  19. ALLOPURINOL [Concomitant]
     Active Substance: ALLOPURINOL
     Dosage: 3 MILLIGRAM, QD
     Dates: start: 20140702

REACTIONS (11)
  - Cardiac arrest [Fatal]
  - Aspiration [Fatal]
  - Myocardial ischaemia [Fatal]
  - Diarrhoea [Unknown]
  - Neutropenia [Unknown]
  - Vomiting [Unknown]
  - Pyrexia [Unknown]
  - Tachycardia [Unknown]
  - Vomiting [Unknown]
  - Pyrexia [Unknown]
  - Tachycardia [Unknown]

NARRATIVE: CASE EVENT DATE: 20140709
